FAERS Safety Report 10815199 (Version 1)
Quarter: 2015Q1

REPORT INFORMATION
  Report Type: Spontaneous
  Country: US (occurrence: US)
  Receive Date: 20150218
  Receipt Date: 20150218
  Transmission Date: 20150721
  Serious: No
  Sender: FDA-Public Use
  Company Number: US-ASTRAZENECA-2014SE73845

PATIENT
  Age: 69 Year
  Sex: Female
  Weight: 70.3 kg

DRUGS (14)
  1. GLIMEPIRIDE. [Concomitant]
     Active Substance: GLIMEPIRIDE
  2. PIOGLITAZONE [Concomitant]
     Active Substance: PIOGLITAZONE
  3. BYDUREON [Suspect]
     Active Substance: EXENATIDE
     Indication: TYPE 2 DIABETES MELLITUS
     Route: 058
     Dates: start: 2012
  4. FISH OIL [Concomitant]
     Active Substance: FISH OIL
  5. CALCIUM [Concomitant]
     Active Substance: CALCIUM
  6. LOSARTAN [Concomitant]
     Active Substance: LOSARTAN
  7. ATORVASTATIN [Concomitant]
     Active Substance: ATORVASTATIN
  8. IRON [Concomitant]
     Active Substance: IRON
  9. ASPIRIN. [Concomitant]
     Active Substance: ASPIRIN
  10. VITAMIN D [Concomitant]
     Active Substance: CHOLECALCIFEROL
  11. OMEPRAZOLE. [Concomitant]
     Active Substance: OMEPRAZOLE
  12. LEVOTHYROXINE [Concomitant]
     Active Substance: LEVOTHYROXINE
  13. METFORMIN [Concomitant]
     Active Substance: METFORMIN HYDROCHLORIDE
  14. ESTRADIOL. [Concomitant]
     Active Substance: ESTRADIOL

REACTIONS (7)
  - Injection site extravasation [Unknown]
  - Vessel puncture site pain [Unknown]
  - Body height decreased [Not Recovered/Not Resolved]
  - Blood glucose increased [Unknown]
  - Underdose [Unknown]
  - Injection site haemorrhage [Unknown]
  - Product quality issue [Unknown]

NARRATIVE: CASE EVENT DATE: 2014
